FAERS Safety Report 4839703-3 (Version None)
Quarter: 2005Q4

REPORT INFORMATION
  Report Type: 
  Country: None (occurrence: None)
  Receive Date: 20051129
  Receipt Date: 20050627
  Transmission Date: 20060501
  Serious: Yes (Other)
  Sender: FDA-Public Use
  Company Number: US-GLAXOSMITHKLINE-A0564280A

PATIENT
  Sex: Male

DRUGS (2)
  1. WELLBUTRIN SR [Suspect]
     Indication: DEPRESSION
     Dosage: 100MG THREE TIMES PER DAY
     Route: 048
     Dates: start: 20020101, end: 20050101
  2. AMITRIPTYLINE HCL [Concomitant]

REACTIONS (2)
  - CONVULSION [None]
  - TREMOR [None]
